FAERS Safety Report 16219161 (Version 2)
Quarter: 2019Q3

REPORT INFORMATION
  Report Type: Spontaneous
  Country: US (occurrence: US)
  Receive Date: 20190419
  Receipt Date: 20190719
  Transmission Date: 20191004
  Serious: Yes (Other)
  Sender: FDA-Public Use
  Company Number: US-ASTRAZENECA-2019SE09867

PATIENT
  Age: 25045 Day
  Sex: Male

DRUGS (18)
  1. LIPITOR [Concomitant]
     Active Substance: ATORVASTATIN CALCIUM
  2. NEXIUM [Suspect]
     Active Substance: ESOMEPRAZOLE MAGNESIUM
     Indication: GASTROOESOPHAGEAL REFLUX DISEASE
     Dosage: TWO TMES A DAY UNKNOWN
     Route: 048
     Dates: start: 1995, end: 1998
  3. CALCITRIOL. [Concomitant]
     Active Substance: CALCITRIOL
  4. CELEBREX [Concomitant]
     Active Substance: CELECOXIB
  5. VIOXX [Concomitant]
     Active Substance: ROFECOXIB
  6. TUMS [Concomitant]
     Active Substance: CALCIUM CARBONATE
  7. PRILOSEC OTC [Suspect]
     Active Substance: OMEPRAZOLE MAGNESIUM
     Route: 048
  8. ATENOLOL. [Concomitant]
     Active Substance: ATENOLOL
  9. PENICILLIN [Concomitant]
     Active Substance: PENICILLIN
  10. NEXIUM [Suspect]
     Active Substance: ESOMEPRAZOLE MAGNESIUM
     Indication: GASTROOESOPHAGEAL REFLUX DISEASE
     Dosage: 40.0MG UNKNOWN
     Route: 048
     Dates: start: 20130124
  11. ALLOPURINOL. [Concomitant]
     Active Substance: ALLOPURINOL
  12. NEXIUM [Suspect]
     Active Substance: ESOMEPRAZOLE MAGNESIUM
     Indication: GASTROOESOPHAGEAL REFLUX DISEASE
     Route: 048
  13. NEXIUM [Suspect]
     Active Substance: ESOMEPRAZOLE MAGNESIUM
     Indication: GASTROOESOPHAGEAL REFLUX DISEASE
     Dosage: TWO TMES A DAY UNKNOWN
     Route: 048
     Dates: start: 1998, end: 2014
  14. COZAAR [Concomitant]
     Active Substance: LOSARTAN POTASSIUM
  15. NEXIUM [Suspect]
     Active Substance: ESOMEPRAZOLE MAGNESIUM
     Indication: GASTROOESOPHAGEAL REFLUX DISEASE
     Dosage: TWO TMES A DAY UNKNOWN
     Route: 048
     Dates: start: 2011, end: 2015
  16. PEPCID AC [Concomitant]
     Active Substance: FAMOTIDINE
  17. NEXIUM 24HR [Suspect]
     Active Substance: ESOMEPRAZOLE MAGNESIUM
     Route: 048
  18. AMLODIPINE [Concomitant]
     Active Substance: AMLODIPINE BESYLATE

REACTIONS (3)
  - Rebound acid hypersecretion [Unknown]
  - Chronic kidney disease [Not Recovered/Not Resolved]
  - Renal failure [Unknown]

NARRATIVE: CASE EVENT DATE: 20160824
